FAERS Safety Report 20748549 (Version 1)
Quarter: 2022Q2

REPORT INFORMATION
  Report Type: Spontaneous
  Country: IT (occurrence: IT)
  Receive Date: 20220426
  Receipt Date: 20220426
  Transmission Date: 20220721
  Serious: Yes (Hospitalization)
  Sender: FDA-Public Use
  Company Number: None

PATIENT
  Age: 64 Year
  Sex: Male
  Weight: 75 kg

DRUGS (2)
  1. ATORVASTATIN [Suspect]
     Active Substance: ATORVASTATIN
     Indication: Coronary artery disease
     Dosage: 80 MG, QD
     Route: 048
     Dates: start: 20210505, end: 20220409
  2. COLCHICINE [Concomitant]
     Active Substance: COLCHICINE
     Indication: Cardiac tamponade
     Dosage: 1 MG, QD
     Route: 048
     Dates: start: 20220315, end: 20220409

REACTIONS (3)
  - Renal failure [Recovering/Resolving]
  - Diarrhoea [Recovering/Resolving]
  - Rhabdomyolysis [Recovering/Resolving]

NARRATIVE: CASE EVENT DATE: 20220408
